FAERS Safety Report 26200964 (Version 1)
Quarter: 2025Q4

REPORT INFORMATION
  Report Type: Spontaneous
  Country: CA (occurrence: CA)
  Receive Date: 20251226
  Receipt Date: 20251226
  Transmission Date: 20260118
  Serious: Yes (Life-Threatening, Hospitalization, Other)
  Sender: TEVA
  Company Number: CA-TEVA-VS-3407057

PATIENT
  Age: 15 Year

DRUGS (2)
  1. PANTOPRAZOLE [Suspect]
     Active Substance: PANTOPRAZOLE
     Indication: Product used for unknown indication
     Dosage: PANTOPRAZOLE SODIUM
     Route: 048
  2. COLCHICINE [Suspect]
     Active Substance: COLCHICINE
     Indication: Product used for unknown indication
     Route: 048

REACTIONS (7)
  - Suicide attempt [Recovered/Resolved]
  - Product use issue [Recovered/Resolved]
  - Systemic toxicity [Recovered/Resolved]
  - Continuous haemodiafiltration [Recovered/Resolved]
  - Intentional overdose [Recovered/Resolved]
  - Plasmapheresis [Recovered/Resolved]
  - Liver dialysis [Recovered/Resolved]
